FAERS Safety Report 5468376-4 (Version None)
Quarter: 2007Q3

REPORT INFORMATION
  Report Type: 
  Country: None (occurrence: None)
  Receive Date: 20070926
  Receipt Date: 20070921
  Transmission Date: 20080115
  Serious: Yes (Hospitalization)
  Sender: FDA-Public Use
  Company Number: B0488605A

PATIENT
  Age: 70 Year
  Sex: Male

DRUGS (1)
  1. CLAVULIN [Suspect]
     Dosage: 1G TWICE PER DAY
     Route: 048
     Dates: start: 20070825, end: 20070826

REACTIONS (7)
  - DERMATITIS ALLERGIC [None]
  - DYSPNOEA [None]
  - HYPERAEMIA [None]
  - HYPOTENSION [None]
  - LIP OEDEMA [None]
  - OEDEMA PERIPHERAL [None]
  - PYREXIA [None]
